FAERS Safety Report 23972043 (Version 1)
Quarter: 2024Q2

REPORT INFORMATION
  Report Type: Spontaneous
  Country: US (occurrence: US)
  Receive Date: 20240613
  Receipt Date: 20240613
  Transmission Date: 20240716
  Serious: Yes (Hospitalization, Other)
  Sender: FDA-Public Use
  Company Number: US-SA-2024SA174908

PATIENT
  Age: 60 Year
  Sex: Male

DRUGS (4)
  1. ENOXAPARIN SODIUM [Suspect]
     Active Substance: ENOXAPARIN SODIUM
     Indication: Deep vein thrombosis
     Dosage: 1 MG/KG, BID
     Route: 058
  2. APIXABAN [Suspect]
     Active Substance: APIXABAN
     Indication: Deep vein thrombosis
     Dosage: 10 MG, BID
  3. DEXAMETHASONE [Concomitant]
     Active Substance: DEXAMETHASONE
     Indication: Deep vein thrombosis
     Dosage: UNK
  4. REMDESIVIR [Concomitant]
     Active Substance: REMDESIVIR
     Indication: COVID-19
     Dosage: UNK

REACTIONS (10)
  - Pelvic haematoma [Unknown]
  - Ecchymosis [Unknown]
  - Hydronephrosis [Unknown]
  - Abdominal wall haematoma [Unknown]
  - Suprapubic pain [Unknown]
  - Abdominal pain [Unknown]
  - Back pain [Unknown]
  - Drug intolerance [Unknown]
  - Retroperitoneal haematoma [Unknown]
  - Urinary tract obstruction [Unknown]
